FAERS Safety Report 19840654 (Version 2)
Quarter: 2021Q3

REPORT INFORMATION
  Report Type: Spontaneous
  Country: US (occurrence: US)
  Receive Date: 20210916
  Receipt Date: 20210929
  Transmission Date: 20211014
  Serious: No
  Sender: FDA-Public Use
  Company Number: US-AIMMUNE THERAPEUTICS, INC.-2021AIMT00544

PATIENT

DRUGS (1)
  1. PALFORZIA [Suspect]
     Active Substance: PEANUT
     Indication: FOOD ALLERGY
     Dosage: 300 MG, 1X/DAY
     Route: 048
     Dates: start: 20210421

REACTIONS (3)
  - Dysphonia [Unknown]
  - Cough [Unknown]
  - Feeling hot [Unknown]
